FAERS Safety Report 5346690-0 (Version None)
Quarter: 2007Q2

REPORT INFORMATION
  Report Type: 
  Country: None (occurrence: None)
  Receive Date: 20070604
  Receipt Date: 20070523
  Transmission Date: 20071010
  Serious: Yes (Other)
  Sender: FDA-Public Use
  Company Number: GXKR2007JP04614

PATIENT
  Sex: 0

DRUGS (1)
  1. RIFAMPICIN [Suspect]
     Dosage: ORAL
     Route: 048

REACTIONS (1)
  - NEPHROTIC SYNDROME [None]
